FAERS Safety Report 5604459-3 (Version None)
Quarter: 2008Q1

REPORT INFORMATION
  Report Type: 
  Country: None (occurrence: None)
  Receive Date: 20080128
  Receipt Date: 20080123
  Transmission Date: 20080703
  Serious: Yes (Death, Hospitalization)
  Sender: FDA-Public Use
  Company Number: PHHY2008JP00706

PATIENT
  Age: 86 Year
  Sex: Female

DRUGS (1)
  1. LAMISIL [Suspect]
     Indication: ONYCHOMYCOSIS
     Dosage: 125 MG/ DAY
     Route: 048
     Dates: start: 20060701, end: 20060801

REACTIONS (2)
  - DEATH [None]
  - LIVER DISORDER [None]
